FAERS Safety Report 16350353 (Version 1)
Quarter: 2019Q2

REPORT INFORMATION
  Report Type: Spontaneous
  Country: CN (occurrence: CN)
  Receive Date: 20190524
  Receipt Date: 20190524
  Transmission Date: 20190711
  Serious: Yes (Other)
  Sender: FDA-Public Use
  Company Number: CN-ROCHE-2324379

PATIENT

DRUGS (3)
  1. OXALIPLATIN. [Concomitant]
     Active Substance: OXALIPLATIN
     Indication: COLON CANCER METASTATIC
     Route: 065
     Dates: start: 201611
  2. CAPECITABINE. [Suspect]
     Active Substance: CAPECITABINE
     Indication: COLON CANCER METASTATIC
     Dosage: FROM DAY1 TO DAY14,EVERY 3 WEEKS
     Route: 065
     Dates: start: 201507, end: 201601
  3. RALTITREXED [Concomitant]
     Active Substance: RALTITREXED
     Indication: COLON CANCER METASTATIC
     Route: 065
     Dates: start: 201611

REACTIONS (1)
  - Radiation pneumonitis [Unknown]
